FAERS Safety Report 8057227-X (Version None)
Quarter: 2012Q1

REPORT INFORMATION
  Report Type: 
  Country: None (occurrence: None)
  Receive Date: 20120119
  Receipt Date: 20120116
  Transmission Date: 20120608
  Serious: Yes (Disabling, Other)
  Sender: FDA-Public Use
  Company Number: PHHY2009DE09700

PATIENT
  Sex: Female
  Weight: 80 kg

DRUGS (2)
  1. ZOLEDRONOC ACID [Suspect]
     Indication: SPINAL FRACTURE
     Dosage: 5 MG, ONCE YEARLY
     Route: 042
     Dates: start: 20081027, end: 20081027
  2. ZOLEDRONOC ACID [Suspect]
     Indication: OSTEOPOROSIS
     Dosage: 5 MG, ONCE YEARLY
     Route: 042
     Dates: start: 20071214

REACTIONS (11)
  - ARTHRALGIA [None]
  - TOOTHACHE [None]
  - BACK PAIN [None]
  - PAIN IN JAW [None]
  - PAIN IN EXTREMITY [None]
  - TOOTH LOSS [None]
  - EYE SWELLING [None]
  - OSTEONECROSIS OF JAW [None]
  - SPLINTER [None]
  - X-RAY DENTAL [None]
  - MOVEMENT DISORDER [None]
